FAERS Safety Report 9349659 (Version 2)
Quarter: 2013Q2

REPORT INFORMATION
  Report Type: Spontaneous
  Country: JP (occurrence: JP)
  Receive Date: 20130614
  Receipt Date: 20130621
  Transmission Date: 20140414
  Serious: Yes (Hospitalization)
  Sender: FDA-Public Use
  Company Number: JP-ASTRAZENECA-2013SE41193

PATIENT
  Age: 84 Year
  Sex: Male

DRUGS (2)
  1. ANAPEINE [Suspect]
     Indication: POSTOPERATIVE ANALGESIA
     Route: 008
  2. XYLOCAINEHYDROCHLORIDE ADRENALIN [Concomitant]
     Indication: EPIDURAL ANAESTHESIA
     Route: 008

REACTIONS (1)
  - Monoplegia [Recovering/Resolving]
